FAERS Safety Report 10892218 (Version 1)
Quarter: 2015Q1

REPORT INFORMATION
  Report Type: Report from Study
  Country: PL (occurrence: PL)
  Receive Date: 20150306
  Receipt Date: 20150306
  Transmission Date: 20150721
  Serious: Yes (Hospitalization)
  Sender: FDA-Public Use
  Company Number: PL-EISAI MEDICAL RESEARCH-EC-2014-000063

PATIENT
  Age: 74 Year
  Sex: Male
  Weight: 63 kg

DRUGS (18)
  1. LENVATINIB [Suspect]
     Active Substance: LENVATINIB
     Route: 048
     Dates: start: 20140918, end: 20150126
  2. EUTHYROX [Concomitant]
     Active Substance: LEVOTHYROXINE SODIUM
  3. CARDURA [Concomitant]
     Active Substance: DOXAZOSIN MESYLATE
  4. LOPERAMID [Concomitant]
     Active Substance: LOPERAMIDE
  5. AMLODIPINE [Concomitant]
     Active Substance: AMLODIPINE BESYLATE
  6. CONTROLOC [Concomitant]
     Active Substance: PANTOPRAZOLE SODIUM
  7. EVEROLIMUS [Concomitant]
     Active Substance: EVEROLIMUS
     Route: 048
     Dates: start: 20140918, end: 20150126
  8. DOXAR [Concomitant]
  9. LENVATINIB [Suspect]
     Active Substance: LENVATINIB
     Indication: RENAL CELL CARCINOMA
     Route: 048
     Dates: start: 20130625, end: 20131115
  10. CALCIUM [Concomitant]
     Active Substance: CALCIUM
  11. KALDYUM [Concomitant]
     Active Substance: POTASSIUM CHLORIDE
  12. LENVATINIB [Suspect]
     Active Substance: LENVATINIB
     Route: 048
     Dates: start: 20131116, end: 20140908
  13. MILURIT [Concomitant]
     Active Substance: ALLOPURINOL
  14. FUROSEMIDE. [Concomitant]
     Active Substance: FUROSEMIDE
  15. SORBIFER DURULES [Concomitant]
     Active Substance: FERROUS SULFATE\FERROUS SULFATE, DRIED
  16. KALIPOL [Concomitant]
  17. TRILAC [Concomitant]
  18. EVEROLIMUS [Concomitant]
     Active Substance: EVEROLIMUS
     Indication: RENAL CELL CARCINOMA
     Route: 048
     Dates: start: 20130625, end: 20140908

REACTIONS (2)
  - Acute kidney injury [Recovered/Resolved]
  - Hypocalcaemia [Recovered/Resolved]

NARRATIVE: CASE EVENT DATE: 20140901
